FAERS Safety Report 8450720-7 (Version None)
Quarter: 2012Q2

REPORT INFORMATION
  Report Type: 
  Country: None (occurrence: None)
  Receive Date: 20120620
  Receipt Date: 20120613
  Transmission Date: 20120825
  Serious: Yes (Other)
  Sender: FDA-Public Use
  Company Number: AU-PFIZER INC-2012142740

PATIENT
  Sex: Male

DRUGS (1)
  1. VFEND [Suspect]
     Indication: SCEDOSPORIUM INFECTION
     Dosage: 200 MG, 2X/DAY
     Route: 048

REACTIONS (4)
  - DRUG INEFFECTIVE [None]
  - SCEDOSPORIUM INFECTION [None]
  - NEUROPATHY PERIPHERAL [None]
  - SKIN CANCER [None]
